FAERS Safety Report 15934630 (Version 1)
Quarter: 2019Q1

REPORT INFORMATION
  Report Type: Spontaneous
  Country: DE (occurrence: DE)
  Receive Date: 20190207
  Receipt Date: 20190207
  Transmission Date: 20190417
  Serious: Yes (Hospitalization, Other)
  Sender: FDA-Public Use
  Company Number: DE-PFIZER INC-2019050222

PATIENT
  Age: 41 Year
  Sex: Female
  Weight: 75 kg

DRUGS (3)
  1. RISPERDAL [Suspect]
     Active Substance: RISPERIDONE
     Indication: SCHIZOPHRENIA
     Dosage: UNK
     Route: 048
     Dates: start: 201806
  2. SERTRALINE HCL [Suspect]
     Active Substance: SERTRALINE HYDROCHLORIDE
     Indication: DEPRESSION
     Dosage: 50 MG, 1X/DAY IN THE MORNING
     Route: 065
     Dates: start: 201811
  3. RISPERDAL [Suspect]
     Active Substance: RISPERIDONE
     Dosage: 3 MG, 1X/DAY
     Route: 048
     Dates: start: 201809

REACTIONS (4)
  - Galactorrhoea [Unknown]
  - Menstrual disorder [Unknown]
  - Blood prolactin increased [Unknown]
  - Libido disorder [Unknown]
